FAERS Safety Report 5538288-6 (Version None)
Quarter: 2007Q4

REPORT INFORMATION
  Report Type: 
  Country: None (occurrence: None)
  Receive Date: 20071123
  Receipt Date: 20070523
  Transmission Date: 20080405
  Serious: Yes (Other)
  Sender: FDA-Public Use
  Company Number: US-JNJFOC-20070506111

PATIENT
  Age: 73 Year
  Sex: Female
  Weight: 74.8435 kg

DRUGS (4)
  1. LEVAQUIN [Suspect]
     Indication: KIDNEY INFECTION
     Dosage: 500 MG, 1 IN 1 DAY
     Dates: start: 20070404, end: 20070410
  2. COZAAR [Concomitant]
  3. METFORMIN (METFORMIN) TABLET [Concomitant]
  4. SIMVASTATIN [Concomitant]

REACTIONS (3)
  - HYPERAESTHESIA [None]
  - MALAISE [None]
  - TENDON RUPTURE [None]
